FAERS Safety Report 6673549-9 (Version None)
Quarter: 2010Q2

REPORT INFORMATION
  Report Type: 
  Country: None (occurrence: None)
  Receive Date: 20100408
  Receipt Date: 20100402
  Transmission Date: 20101027
  Serious: Yes (Other)
  Sender: FDA-Public Use
  Company Number: US-JNJCH-2010008153

PATIENT
  Age: 53 Year
  Sex: Male
  Weight: 90.7 kg

DRUGS (2)
  1. NEOSPORIN MAXIMUM STRENGTH OINTMENT [Suspect]
     Indication: APPLICATION SITE BURN
     Dosage: TEXT:UNSPECIFIED
     Route: 061
  2. TRIAMTERENE [Concomitant]
     Indication: ECZEMA
     Dosage: TEXT:UNKNOWN
     Route: 065

REACTIONS (2)
  - APPLICATION SITE PUSTULES [None]
  - CONDITION AGGRAVATED [None]
